FAERS Safety Report 6905853-0 (Version None)
Quarter: 2010Q3

REPORT INFORMATION
  Report Type: 
  Country: None (occurrence: None)
  Receive Date: 20100804
  Receipt Date: 20100726
  Transmission Date: 20110219
  Serious: Yes (Hospitalization)
  Sender: FDA-Public Use
  Company Number: US-ROCHE-716174

PATIENT
  Sex: Female
  Weight: 85.5 kg

DRUGS (11)
  1. TRASTUZUMAB [Suspect]
     Indication: BREAST CANCER
     Dosage: LOADING DOSE, FORM: VIALS
     Route: 042
  2. TRASTUZUMAB [Suspect]
     Dosage: FORM: VIALS, MAINTENANCE DOSE, TOTAL DOSE: 680 MG, DATE OF LAST DOSE PRIOR TO SAE: 07 JULY 2010
     Route: 042
     Dates: start: 20100616
  3. BEVACIZUMAB [Suspect]
     Indication: BREAST CANCER
     Dosage: FORM: VIALS, TOTAL DOSE: 1275 MG, DATE OF LAST DOSE PRIOR TO SAE: 07 JULY 2010
     Route: 042
     Dates: start: 20100616
  4. CARBOPLATIN [Suspect]
     Indication: BREAST CANCER
     Dosage: FORM: VIALS, DOSE LEVEL: 6 AUC, DATE OF LAST DOSE PRIOR TO SAE: 07 JULY 2010
     Route: 042
     Dates: start: 20100616
  5. DOCETAXEL [Suspect]
     Indication: BREAST CANCER
     Dosage: FORM: VIALS, TOTAL DOSE:140 MG, DATE OF LAST DOSE PRIOR TO SAE: 07 JULY 2010
     Route: 042
     Dates: start: 20100616
  6. OXYCODONE [Concomitant]
     Indication: PAIN
     Dates: start: 20100421
  7. DECADRON [Concomitant]
     Dates: start: 20100615
  8. DECADRON [Concomitant]
     Dosage: DAY1 AND DAY 2.
     Dates: start: 20100616
  9. COMPAZINE [Concomitant]
     Indication: NAUSEA
  10. EMEND [Concomitant]
     Dosage: TOTAL DAILY DOSE: QD
     Dates: start: 20100616
  11. NEUPOGEN [Concomitant]
     Dosage: DAY 2-10, UNIT REPORTED AS: MCG.
     Route: 058
     Dates: start: 20100707

REACTIONS (2)
  - CHEST PAIN [None]
  - FEBRILE NEUTROPENIA [None]
